FAERS Safety Report 6539031-4 (Version None)
Quarter: 2010Q1

REPORT INFORMATION
  Report Type: 
  Country: None (occurrence: None)
  Receive Date: 20100110
  Receipt Date: 20091223
  Transmission Date: 20100710
  Serious: Yes (Life-Threatening, Hospitalization)
  Sender: FDA-Public Use
  Company Number: 2010AL000082

PATIENT
  Age: 73 Year
  Sex: Female

DRUGS (12)
  1. MELOXICAM [Suspect]
  2. METFORMIN HCL [Suspect]
  3. CO-FLUAMPICIL [Concomitant]
  4. ERYTHROMYCIN [Concomitant]
  5. CEFACLOR [Concomitant]
  6. WARFARIN [Concomitant]
  7. OXYBUTYNIN [Concomitant]
  8. OMEPRAZOLE [Concomitant]
  9. GABAPENTIN [Concomitant]
  10. LOPERAMIDE [Concomitant]
  11. HUMALOG [Concomitant]
  12. HUMALOG [Concomitant]

REACTIONS (2)
  - DRUG INTERACTION [None]
  - HYPERKALAEMIA [None]
